FAERS Safety Report 11160168 (Version 1)
Quarter: 2015Q2

REPORT INFORMATION
  Report Type: Spontaneous
  Country: US (occurrence: US)
  Receive Date: 20150603
  Receipt Date: 20150603
  Transmission Date: 20150821
  Serious: Yes (Other)
  Sender: FDA-Public Use
  Company Number: US-BIOMARINAP-US-2015-106483

PATIENT
  Age: 27 Year
  Sex: Female
  Weight: 68 kg

DRUGS (1)
  1. KUVAN [Suspect]
     Active Substance: SAPROPTERIN DIHYDROCHLORIDE
     Indication: PHENYLKETONURIA
     Dosage: 1300 MG, QD
     Route: 048
     Dates: start: 2007

REACTIONS (3)
  - Hodgkin^s disease [Not Recovered/Not Resolved]
  - Mediastinal mass [Unknown]
  - Sinus disorder [Unknown]

NARRATIVE: CASE EVENT DATE: 201505
